FAERS Safety Report 11400638 (Version 3)
Quarter: 2015Q3

REPORT INFORMATION
  Report Type: Spontaneous
  Country: US (occurrence: US)
  Receive Date: 20150820
  Receipt Date: 20150929
  Transmission Date: 20151125
  Serious: Yes (Other)
  Sender: FDA-Public Use
  Company Number: ALCN2015US004827

PATIENT
  Age: 57 Year
  Sex: Female

DRUGS (2)
  1. PREDNISOLONE ACETATE. [Suspect]
     Active Substance: PREDNISOLONE ACETATE
     Dosage: 1 GTT, BID
     Route: 047
     Dates: start: 201507, end: 20150721
  2. PREDNISOLONE ACETATE. [Suspect]
     Active Substance: PREDNISOLONE ACETATE
     Indication: POSTOPERATIVE CARE
     Dosage: 1 GTT, TID
     Route: 047
     Dates: start: 20150723, end: 20150803

REACTIONS (8)
  - Corneal infiltrates [Recovered/Resolved]
  - Corneal deposits [Recovered/Resolved]
  - Conjunctivitis viral [Recovered/Resolved]
  - Vision blurred [Recovering/Resolving]
  - Halo vision [Not Recovered/Not Resolved]
  - Visual acuity reduced [Recovered/Resolved]
  - Eye allergy [Recovered/Resolved]
  - Lacrimation increased [Recovered/Resolved]

NARRATIVE: CASE EVENT DATE: 20150723
